FAERS Safety Report 8236280-4 (Version None)
Quarter: 2012Q1

REPORT INFORMATION
  Report Type: 
  Country: None (occurrence: None)
  Receive Date: 20120309
  Receipt Date: 20110619
  Transmission Date: 20120608
  Serious: Yes (Other)
  Sender: FDA-Public Use
  Company Number: PHHY2010US71344

PATIENT
  Age: 55 Year
  Sex: Female

DRUGS (2)
  1. BACLOFEN [Concomitant]
  2. EXTAVIA [Suspect]
     Indication: MULTIPLE SCLEROSIS
     Dosage: 0.25 MG, QOD, SUBCUTANEOUS
     Route: 058
     Dates: start: 20100301

REACTIONS (8)
  - MUSCLE SPASMS [None]
  - GAIT DISTURBANCE [None]
  - MULTIPLE SCLEROSIS RELAPSE [None]
  - INJECTION SITE SWELLING [None]
  - INJECTION SITE ERYTHEMA [None]
  - INJECTION SITE WARMTH [None]
  - INJECTION SITE PAIN [None]
  - MUSCLE TIGHTNESS [None]
